FAERS Safety Report 7859969-5 (Version None)
Quarter: 2011Q4

REPORT INFORMATION
  Report Type: 
  Country: None (occurrence: None)
  Receive Date: 20111025
  Receipt Date: 20111012
  Transmission Date: 20120403
  Serious: Yes (Hospitalization, Other)
  Sender: FDA-Public Use
  Company Number: ACO_26725_2011

PATIENT
  Age: 60 Year
  Sex: Female

DRUGS (14)
  1. EFFEXOR [Concomitant]
  2. AMBIEN [Concomitant]
  3. TYSABRI [Concomitant]
  4. ELAVIL /00002202/ (AMITRIPTYLINE HYDROCHLORIDE) [Concomitant]
  5. LISINOPRIL /00894002/ (LISINOPRIL DIHYDRATE) [Concomitant]
  6. REQUIP [Concomitant]
  7. HYDROCHLOROTHIAZIDE [Concomitant]
  8. BACLOFEN [Concomitant]
  9. AMPYRA [Suspect]
     Indication: GAIT DISTURBANCE
     Dosage: 10 NMG, Q 12HRS
     Dates: start: 20110801, end: 20110101
  10. ZOCOR [Concomitant]
  11. LOPRESSOR [Concomitant]
  12. ASPIRIN [Concomitant]
  13. OMEPRAZOLE [Concomitant]
  14. ACETAMINOPHEN [Concomitant]

REACTIONS (11)
  - THROAT TIGHTNESS [None]
  - EYELID OEDEMA [None]
  - HEART RATE ABNORMAL [None]
  - MUSCLE SPASMS [None]
  - OEDEMA PERIPHERAL [None]
  - EYE SWELLING [None]
  - URINARY TRACT INFECTION [None]
  - BRAIN SCAN ABNORMAL [None]
  - LOCAL SWELLING [None]
  - HYPERSENSITIVITY [None]
  - HEART RATE INCREASED [None]
